FAERS Safety Report 14702418 (Version 3)
Quarter: 2018Q3

REPORT INFORMATION
  Report Type: Spontaneous
  Country: DE (occurrence: DE)
  Receive Date: 20180401
  Receipt Date: 20180831
  Transmission Date: 20181010
  Serious: Yes (Hospitalization)
  Sender: FDA-Public Use
  Company Number: PHHY2017DE202012

PATIENT
  Age: 76 Year
  Sex: Female
  Weight: 86 kg

DRUGS (7)
  1. PERTUZUMAB. [Suspect]
     Active Substance: PERTUZUMAB
     Indication: HER-2 POSITIVE BREAST CANCER
     Dosage: 420 MG, Q3W
     Route: 042
     Dates: start: 20170920
  2. FLUCLOXACILLIN [Concomitant]
     Active Substance: FLUCLOXACILLIN
     Indication: INFECTION
     Dosage: 2 G, QD
     Route: 042
     Dates: start: 20171109, end: 20171122
  3. HERCEPTIN [Suspect]
     Active Substance: TRASTUZUMAB
     Indication: HER-2 POSITIVE BREAST CANCER
     Dosage: 178 MG, QW
     Route: 042
     Dates: start: 20170920
  4. PACLITAXEL. [Suspect]
     Active Substance: PACLITAXEL
     Indication: HER-2 POSITIVE BREAST CANCER
     Dosage: 156.8 MG, QW
     Route: 042
     Dates: start: 20170920, end: 20171025
  5. CEFUROXIM [Concomitant]
     Active Substance: CEFUROXIME
     Indication: INFECTION
     Dosage: 1.5 MG, QD
     Route: 042
     Dates: start: 20171107, end: 20171109
  6. HERCEPTIN [Suspect]
     Active Substance: TRASTUZUMAB
     Dosage: 178 MG, QW
     Route: 042
     Dates: start: 20170921
  7. UNACID [Concomitant]
     Indication: INFECTION
     Dosage: 1 MG, QD
     Route: 042
     Dates: start: 20171104, end: 20171107

REACTIONS (6)
  - Paraesthesia [Not Recovered/Not Resolved]
  - Fatigue [Recovered/Resolved]
  - Decreased appetite [Recovered/Resolved]
  - Diarrhoea [Recovered/Resolved]
  - Stomatitis [Recovered/Resolved]
  - Constipation [Recovered/Resolved]

NARRATIVE: CASE EVENT DATE: 20170920
